FAERS Safety Report 8301854-9 (Version None)
Quarter: 2012Q2

REPORT INFORMATION
  Report Type: 
  Country: None (occurrence: None)
  Receive Date: 20120417
  Receipt Date: 20120403
  Transmission Date: 20120825
  Serious: Yes (Other)
  Sender: FDA-Public Use
  Company Number: JPI-P-020737

PATIENT
  Age: 51 Year
  Sex: Female

DRUGS (4)
  1. METFORMIN HCL [Concomitant]
  2. XYREM [Suspect]
     Indication: SLEEP DISORDER
     Dosage: 4.5 GM (2.25 GM, 2 IN 1 D), ORAL, ORAL, 4 GM (2 GM, 2 IN 1 D), ORAL
     Route: 048
     Dates: start: 20120320
  3. XYREM [Suspect]
     Indication: SLEEP DISORDER
     Dosage: 4.5 GM (2.25 GM, 2 IN 1 D), ORAL, ORAL, 4 GM (2 GM, 2 IN 1 D), ORAL
     Route: 048
     Dates: start: 20081217
  4. HYDROCHLOROTHIAZIDE W/LISINOPRIL (ZESTORETIC) [Concomitant]

REACTIONS (7)
  - WEIGHT INCREASED [None]
  - AGITATION [None]
  - GLUCOSE TOLERANCE IMPAIRED [None]
  - FALL [None]
  - BACK PAIN [None]
  - SURGERY [None]
  - NERVOUS SYSTEM DISORDER [None]
